FAERS Safety Report 7939268-3 (Version None)
Quarter: 2011Q4

REPORT INFORMATION
  Report Type: 
  Country: None (occurrence: None)
  Receive Date: 20111125
  Receipt Date: 20111116
  Transmission Date: 20120403
  Serious: Yes (Hospitalization, Other)
  Sender: FDA-Public Use
  Company Number: GB-AMGEN-GBRSP2011058566

PATIENT
  Age: 81 Year
  Sex: Female
  Weight: 56 kg

DRUGS (7)
  1. SIMVASTATIN [Concomitant]
     Dosage: 40 MG, QD
     Route: 048
  2. CALCIUM CARBONATE [Concomitant]
     Indication: OSTEOPOROSIS
     Dosage: 1 DF, QD
     Route: 048
  3. OMEPRAZOLE [Concomitant]
     Indication: GASTROOESOPHAGEAL REFLUX DISEASE
     Dosage: 40 MG, QD
     Route: 048
  4. DILTIAZEM HCL [Concomitant]
     Indication: HYPERTENSION
     Dosage: 300 MG, UNK
     Route: 048
  5. RAMIPRIL [Concomitant]
     Indication: HYPERTENSION
     Dosage: 1.25 MG, QD
     Route: 048
  6. PROLIA [Suspect]
     Indication: OSTEOPOROSIS
     Dosage: 60 MG, UNK
     Route: 058
     Dates: start: 20110131
  7. ALFACALCIDOL [Concomitant]
     Indication: RENAL FAILURE CHRONIC
     Dosage: 0.25 MUG, QD
     Route: 048

REACTIONS (3)
  - LOWER RESPIRATORY TRACT INFECTION [None]
  - HYPOCALCAEMIA [None]
  - LOBAR PNEUMONIA [None]
